FAERS Safety Report 8715352 (Version 2)
Quarter: 2012Q4

REPORT INFORMATION
  Report Type: 
  Country: JP (occurrence: JP)
  Receive Date: 20120809
  Receipt Date: 20120904
  Transmission Date: 20130627
  Serious: Yes (Other)
  Sender: FDA-Public Use
  Company Number: JP-GLAXOSMITHKLINE-B0818306A

PATIENT
  Age: 65 Year
  Sex: Male
  Weight: 68.7 kg

DRUGS (10)
  1. SERETIDE (50MCG/250MCG) [Suspect]
     Indication: ASTHMA
     Dosage: 500MCG Per day
     Route: 055
     Dates: start: 20120711, end: 20120711
  2. SERETIDE (50MCG/250MCG) [Suspect]
     Indication: ASTHMA
     Dosage: 500MCG Per day
     Route: 055
     Dates: start: 20120712, end: 20120713
  3. SERETIDE (50MCG/250MCG) [Suspect]
     Indication: ASTHMA
     Dosage: 250MCG Per day
     Route: 055
     Dates: start: 20120714, end: 20120714
  4. EBASTEL [Concomitant]
     Indication: HYPERSENSITIVITY
     Dosage: 10MG Per day
     Route: 048
     Dates: start: 20120711
  5. HERBESSER R [Concomitant]
     Indication: ANGINA PECTORIS
     Dosage: 100MG Per day
     Route: 048
     Dates: start: 1999
  6. BAYASPIRIN [Concomitant]
     Indication: ANGINA PECTORIS
     Dosage: 100MG Per day
     Route: 048
  7. NU-LOTAN [Concomitant]
     Indication: HYPERTENSION
     Dosage: 25MG Per day
     Route: 048
     Dates: start: 200812
  8. LIPITOR [Concomitant]
     Indication: HYPERCHOLESTEROLAEMIA
     Dosage: 20MG Per day
     Route: 048
     Dates: start: 20070111
  9. LIPIDIL [Concomitant]
     Indication: HYPERLIPIDAEMIA
     Dosage: 53.3MG Per day
     Route: 048
     Dates: start: 20120711
  10. SALOBEL [Concomitant]
     Dosage: 100MG Per day
     Route: 048

REACTIONS (19)
  - Anaphylactic reaction [Recovering/Resolving]
  - Dyspnoea [Recovering/Resolving]
  - Dyspnoea [Recovered/Resolved]
  - Feeling abnormal [Recovered/Resolved]
  - Chest discomfort [Recovered/Resolved]
  - Cold sweat [Unknown]
  - Musculoskeletal stiffness [Unknown]
  - Hypoaesthesia [Recovered/Resolved]
  - Ear pain [Unknown]
  - Superficial vein prominence [Unknown]
  - Orthopnoea [Recovered/Resolved]
  - Accidental overdose [Unknown]
  - Dyspnoea exertional [Unknown]
  - Anxiety [Unknown]
  - Gastrooesophageal reflux disease [Unknown]
  - Bronchospasm [Unknown]
  - Nausea [Unknown]
  - Vomiting [Unknown]
  - Diarrhoea [Unknown]
